FAERS Safety Report 14680593 (Version 2)
Quarter: 2018Q2

REPORT INFORMATION
  Report Type: Spontaneous
  Country: US (occurrence: US)
  Receive Date: 20180326
  Receipt Date: 20180426
  Transmission Date: 20180711
  Serious: No
  Sender: FDA-Public Use
  Company Number: US-GLAXOSMITHKLINE-US2018049243

PATIENT
  Age: 22 Year
  Sex: Female
  Weight: 72.11 kg

DRUGS (1)
  1. LAMOTRIGINE TABLET [Suspect]
     Active Substance: LAMOTRIGINE
     Indication: DEPRESSION
     Dosage: 25 MG, QD
     Dates: start: 20180314, end: 20180315

REACTIONS (11)
  - Rash [Not Recovered/Not Resolved]
  - Off label use [Unknown]
  - Rash maculo-papular [Unknown]
  - Product use in unapproved indication [Unknown]
  - Rash erythematous [Unknown]
  - Malaise [Not Recovered/Not Resolved]
  - Pyrexia [Not Recovered/Not Resolved]
  - Skin lesion [Unknown]
  - Dehydration [Unknown]
  - Rash generalised [Not Recovered/Not Resolved]
  - Chest discomfort [Unknown]

NARRATIVE: CASE EVENT DATE: 20180314
